FAERS Safety Report 10825716 (Version 3)
Quarter: 2016Q1

REPORT INFORMATION
  Report Type: Spontaneous
  Country: US (occurrence: US)
  Receive Date: 20150219
  Receipt Date: 20160201
  Transmission Date: 20160525
  Serious: Yes (Other)
  Sender: FDA-Public Use
  Company Number: US-ABBVIE-14K-163-1315371-00

PATIENT
  Age: 43 Year
  Sex: Male
  Weight: 72.64 kg

DRUGS (2)
  1. HUMIRA [Suspect]
     Active Substance: ADALIMUMAB
     Indication: CROHN^S DISEASE
     Route: 058
     Dates: start: 2010
  2. AZATHIOPRINE. [Concomitant]
     Active Substance: AZATHIOPRINE
     Indication: CROHN^S DISEASE

REACTIONS (12)
  - Lacrimation increased [Recovered/Resolved]
  - Mean cell volume decreased [Unknown]
  - Anaemia [Unknown]
  - Cardiovascular disorder [Unknown]
  - Mean cell haemoglobin concentration decreased [Unknown]
  - Eye infection [Unknown]
  - Haemoglobin decreased [Unknown]
  - Red cell distribution width increased [Unknown]
  - Red blood cell count increased [Unknown]
  - Optic neuritis [Recovered/Resolved]
  - Photophobia [Recovered/Resolved]
  - Mean cell haemoglobin decreased [Unknown]

NARRATIVE: CASE EVENT DATE: 20141105
